FAERS Safety Report 18681643 (Version 1)
Quarter: 2020Q4

REPORT INFORMATION
  Report Type: Spontaneous
  Country: US (occurrence: US)
  Receive Date: 20201229
  Receipt Date: 20201229
  Transmission Date: 20210114
  Serious: Yes (Hospitalization, Other)
  Sender: FDA-Public Use
  Company Number: US-BEH-2020126505

PATIENT
  Sex: Male

DRUGS (10)
  1. VITAMINS NOS [Concomitant]
     Active Substance: VITAMINS
     Route: 065
  2. HYDROXYZINE [Concomitant]
     Active Substance: HYDROXYZINE HYDROCHLORIDE
     Dosage: 10 MILLIGRAM
     Route: 065
  3. HIZENTRA [Suspect]
     Active Substance: HUMAN IMMUNOGLOBULIN G
     Indication: IMMUNODEFICIENCY
     Dosage: 14 GRAM, QW
     Route: 058
  4. HYDROXYCHLOROQUINE [Concomitant]
     Active Substance: HYDROXYCHLOROQUINE
     Dosage: 200 MILLIGRAM
     Route: 065
  5. LEXAPRO [Concomitant]
     Active Substance: ESCITALOPRAM OXALATE
     Dosage: 20 MILLIGRAM
     Route: 065
  6. AMOXICILLIN. [Concomitant]
     Active Substance: AMOXICILLIN
     Route: 065
  7. TRAZODONE HYDROCHLORIDE. [Concomitant]
     Active Substance: TRAZODONE HYDROCHLORIDE
     Dosage: 50 MILLIGRAM
     Route: 065
  8. HIZENTRA [Suspect]
     Active Substance: HUMAN IMMUNOGLOBULIN G
     Dosage: UNK
     Route: 058
  9. CANNABIDIOL [Concomitant]
     Active Substance: CANNABIDIOL
     Dosage: 4-3-9-1%
     Route: 065
  10. ZYRTEC [Concomitant]
     Active Substance: CETIRIZINE HYDROCHLORIDE
     Dosage: 10 MILLIGRAM
     Route: 065

REACTIONS (12)
  - Nausea [Unknown]
  - Fall [Unknown]
  - Cough [Unknown]
  - Nasal injury [Unknown]
  - Face injury [Unknown]
  - Chest injury [Unknown]
  - Accident [Unknown]
  - Concussion [Unknown]
  - Hospitalisation [Unknown]
  - Anger [Unknown]
  - Head injury [Unknown]
  - Dizziness [Unknown]

NARRATIVE: CASE EVENT DATE: 2020
